FAERS Safety Report 20336633 (Version 1)
Quarter: 2022Q1

REPORT INFORMATION
  Report Type: Report from Study
  Country: MX (occurrence: MX)
  Receive Date: 20220114
  Receipt Date: 20220114
  Transmission Date: 20220423
  Serious: Yes (Death)
  Sender: FDA-Public Use
  Company Number: MX-UCBSA-2020027320

PATIENT
  Sex: Male
  Weight: 78 kg

DRUGS (6)
  1. ROTIGOTINE [Suspect]
     Active Substance: ROTIGOTINE
     Indication: Parkinsonism
     Dosage: 2 MILLIGRAM, ONCE DAILY (QD)
     Route: 062
     Dates: start: 2020
  2. ROTIGOTINE [Suspect]
     Active Substance: ROTIGOTINE
     Indication: Parkinson^s disease
     Dosage: 4 MILLIGRAM, ONCE DAILY (QD)
     Route: 062
     Dates: end: 202010
  3. SENNOSIDES [Concomitant]
     Active Substance: SENNOSIDES
     Indication: Constipation
     Dosage: 2 TABLETS EVERY 8 DAYS
  4. SUCRALFATE [Concomitant]
     Active Substance: SUCRALFATE
     Indication: Gastritis
     Dosage: UNK
  5. CIPROLISINA [Concomitant]
     Indication: Decreased appetite
     Dosage: UNK
  6. METOPROLOL [Concomitant]
     Active Substance: METOPROLOL
     Indication: Hypertension

REACTIONS (7)
  - Respiratory arrest [Fatal]
  - Sudden onset of sleep [Recovered/Resolved]
  - Dizziness [Unknown]
  - Hypoacusis [Unknown]
  - Constipation [Unknown]
  - Gastritis [Unknown]
  - Product storage error [Unknown]
